FAERS Safety Report 8400835 (Version 2)
Quarter: 2013Q1

REPORT INFORMATION
  Report Type: Spontaneous
  Country: US (occurrence: US)
  Receive Date: 20120210
  Receipt Date: 20130219
  Transmission Date: 20140127
  Serious: No
  Sender: FDA-Public Use
  Company Number: US-BRISTOL-MYERS SQUIBB COMPANY-16238362

PATIENT
  Sex: Female

DRUGS (1)
  1. ORENCIA [Suspect]
     Indication: RHEUMATOID ARTHRITIS
     Dosage: RECENT INF 17NOV11
     Route: 042

REACTIONS (3)
  - Rheumatoid arthritis [Unknown]
  - Joint effusion [Unknown]
  - Meniscus injury [Unknown]
